FAERS Safety Report 11501586 (Version 2)
Quarter: 2015Q3

REPORT INFORMATION
  Report Type: Spontaneous
  Country: None (occurrence: IT)
  Receive Date: 20150914
  Receipt Date: 20150916
  Transmission Date: 20151125
  Serious: Yes (Hospitalization)
  Sender: FDA-Public Use
  Company Number: IT-MERCK KGAA-1041905

PATIENT

DRUGS (1)
  1. NOVOTHYROX [Suspect]
     Active Substance: LEVOTHYROXINE SODIUM

REACTIONS (7)
  - Disorientation [None]
  - Vertigo [None]
  - Dizziness [None]
  - Loss of consciousness [None]
  - Hyponatraemia [None]
  - Dehydration [None]
  - Drug interaction [None]
